FAERS Safety Report 12416514 (Version 1)
Quarter: 2016Q2

REPORT INFORMATION
  Report Type: Spontaneous
  Country: BR (occurrence: BR)
  Receive Date: 20160530
  Receipt Date: 20160530
  Transmission Date: 20160815
  Serious: Yes (Other)
  Sender: FDA-Public Use
  Company Number: BR-JNJFOC-20130413959

PATIENT
  Age: 61 Year
  Sex: Female

DRUGS (1)
  1. SIMPONI [Suspect]
     Active Substance: GOLIMUMAB
     Indication: RHEUMATOID ARTHRITIS
     Route: 058
     Dates: start: 20130418

REACTIONS (5)
  - Epistaxis [Recovered/Resolved]
  - Fatigue [Unknown]
  - Haemorrhage [Unknown]
  - Hypoaesthesia [Not Recovered/Not Resolved]
  - Skin discolouration [Unknown]

NARRATIVE: CASE EVENT DATE: 20130419
